FAERS Safety Report 19749467 (Version 1)
Quarter: 2021Q3

REPORT INFORMATION
  Report Type: Spontaneous
  Country: US (occurrence: US)
  Receive Date: 20210823
  Receipt Date: 20210823
  Transmission Date: 20211014
  Serious: No
  Sender: FDA-Public Use
  Company Number: None

PATIENT
  Age: 59 Year
  Sex: Female

DRUGS (2)
  1. OLANZAPINE. [Suspect]
     Active Substance: OLANZAPINE
  2. OLANZAPINE. [Suspect]
     Active Substance: OLANZAPINE

REACTIONS (3)
  - Product appearance confusion [None]
  - Product dispensing error [None]
  - Product packaging confusion [None]

NARRATIVE: CASE EVENT DATE: 20210617
